FAERS Safety Report 9934097 (Version 2)
Quarter: 2014Q1

REPORT INFORMATION
  Report Type: Spontaneous
  Country: US (occurrence: US)
  Receive Date: 20140228
  Receipt Date: 20140228
  Transmission Date: 20141002
  Serious: No
  Sender: FDA-Public Use
  Company Number: US-ABBVIE-14P-163-1189925-00

PATIENT
  Age: 72 Year
  Sex: Female
  Weight: 62.65 kg

DRUGS (4)
  1. ANDROGEL [Suspect]
     Indication: ENERGY INCREASED
     Dosage: 1 PUMP DAILY
     Route: 061
     Dates: start: 201304
  2. ANDROGEL [Suspect]
     Indication: UNEVALUABLE EVENT
  3. ZOCOR [Concomitant]
     Indication: BLOOD CHOLESTEROL INCREASED
  4. OMEPRAZOLE [Concomitant]
     Indication: GASTROOESOPHAGEAL REFLUX DISEASE

REACTIONS (6)
  - Hair growth abnormal [Not Recovered/Not Resolved]
  - Energy increased [Not Recovered/Not Resolved]
  - Unevaluable event [Not Recovered/Not Resolved]
  - Therapeutic response unexpected [Not Recovered/Not Resolved]
  - Off label use [Not Recovered/Not Resolved]
  - Dysphonia [Not Recovered/Not Resolved]
